FAERS Safety Report 24412494 (Version 1)
Quarter: 2024Q4

REPORT INFORMATION
  Report Type: Spontaneous
  Country: RS (occurrence: RS)
  Receive Date: 20241008
  Receipt Date: 20241008
  Transmission Date: 20250114
  Serious: Yes (Other)
  Sender: BAUSCH AND LOMB
  Company Number: RS-BAUSCH-BL-2024-014837

PATIENT
  Age: 60 Year
  Sex: Female
  Weight: 90 kg

DRUGS (4)
  1. METFORMIN [Suspect]
     Active Substance: METFORMIN HYDROCHLORIDE
     Indication: Product used for unknown indication
     Route: 065
  2. ASPIRIN [Suspect]
     Active Substance: ASPIRIN
     Indication: Product used for unknown indication
     Dosage: 1X1
     Route: 065
  3. RAMIPRIL [Suspect]
     Active Substance: RAMIPRIL
     Indication: Product used for unknown indication
     Dosage: 2X1
     Route: 065
  4. AMILORIDE HYDROCHLORIDE\METHYCLOTHIAZIDE [Suspect]
     Active Substance: AMILORIDE HYDROCHLORIDE\METHYCLOTHIAZIDE
     Indication: Product used for unknown indication
     Dosage: EVERY DAY
     Route: 065

REACTIONS (7)
  - Nephrolithiasis [Recovering/Resolving]
  - Hypertension [Recovered/Resolved]
  - Oedema peripheral [Recovered/Resolved]
  - Hepatic steatosis [Recovering/Resolving]
  - Flatulence [Recovering/Resolving]
  - Hyperlipidaemia [Recovering/Resolving]
  - Headache [Recovering/Resolving]
